FAERS Safety Report 20997869 (Version 1)
Quarter: 2022Q2

REPORT INFORMATION
  Report Type: Spontaneous
  Country: US (occurrence: US)
  Receive Date: 20220623
  Receipt Date: 20220623
  Transmission Date: 20220721
  Serious: Yes (Other)
  Sender: FDA-Public Use
  Company Number: US-BAYER-2022A086161

PATIENT
  Age: 67 Year
  Sex: Male

DRUGS (3)
  1. ASPIRIN [Suspect]
     Active Substance: ASPIRIN
     Dosage: UNK
  2. ELIQUIS [Suspect]
     Active Substance: APIXABAN
  3. PLAVIX [Suspect]
     Active Substance: CLOPIDOGREL BISULFATE

REACTIONS (1)
  - Blood loss anaemia [None]
